FAERS Safety Report 9168182 (Version 1)
Quarter: 2013Q1

REPORT INFORMATION
  Report Type: Spontaneous
  Country: GB (occurrence: None)
  Receive Date: 20130305
  Receipt Date: 20130305
  Transmission Date: 20140127
  Serious: Yes (Other)
  Sender: FDA-Public Use
  Company Number: GB-DEXPHARM-20130062

PATIENT
  Age: 20 Year
  Sex: Female

DRUGS (2)
  1. OMEPRAZOLE [Suspect]
  2. GAVISCON [Concomitant]

REACTIONS (3)
  - Maternal exposure during pregnancy [None]
  - Foetal death [None]
  - Vaginal haemorrhage [None]
